FAERS Safety Report 12598007 (Version 2)
Quarter: 2016Q3

REPORT INFORMATION
  Report Type: Spontaneous
  Country: JP (occurrence: JP)
  Receive Date: 20160727
  Receipt Date: 20160727
  Transmission Date: 20161109
  Serious: Yes (Hospitalization, Other)
  Sender: FDA-Public Use
  Company Number: JP-BAYER-2016-137465

PATIENT
  Age: 68 Year
  Sex: Female

DRUGS (1)
  1. BAYASPIRIN [Suspect]
     Active Substance: ASPIRIN
     Indication: POLYCYTHAEMIA VERA
     Dosage: 100 MG, QD
     Route: 048

REACTIONS (4)
  - Necrosis [None]
  - Depression [None]
  - Subcutaneous haematoma [None]
  - Haemorrhage [None]
